FAERS Safety Report 7611491-7 (Version None)
Quarter: 2011Q3

REPORT INFORMATION
  Report Type: 
  Country: None (occurrence: None)
  Receive Date: 20110715
  Receipt Date: 20110714
  Transmission Date: 20111222
  Serious: Yes (Hospitalization)
  Sender: FDA-Public Use
  Company Number: US-PFIZER INC-2011160171

PATIENT
  Sex: Female

DRUGS (1)
  1. MEDROL [Suspect]
     Indication: POLYMYALGIA RHEUMATICA
     Dosage: 4 MG, 2X/DAY
     Route: 048
     Dates: start: 20110501

REACTIONS (3)
  - COUNTERFEIT DRUG ADMINISTERED [None]
  - MALAISE [None]
  - UNEVALUABLE EVENT [None]
